FAERS Safety Report 25011629 (Version 1)
Quarter: 2025Q1

REPORT INFORMATION
  Report Type: Spontaneous
  Country: US (occurrence: US)
  Receive Date: 20250226
  Receipt Date: 20250226
  Transmission Date: 20250408
  Serious: No
  Sender: ALEXION PHARMACEUTICALS
  Company Number: US-AstraZeneca-CH-00814024AP

PATIENT
  Age: 68 Year

DRUGS (1)
  1. BREZTRI [Suspect]
     Active Substance: BUDESONIDE\FORMOTEROL\GLYCOPYRROLATE
     Indication: Chronic obstructive pulmonary disease
     Dosage: 160 MICROGRAM, BID
     Route: 065

REACTIONS (5)
  - Counterfeit product administered [Unknown]
  - Contraindicated product administered [Unknown]
  - Device delivery system issue [Unknown]
  - Device delivery system issue [Unknown]
  - Inappropriate schedule of product administration [Unknown]
